FAERS Safety Report 9898843 (Version 1)
Quarter: 2014Q1

REPORT INFORMATION
  Report Type: Report from Study
  Country: IT (occurrence: IT)
  Receive Date: 20140214
  Receipt Date: 20140214
  Transmission Date: 20141002
  Serious: Yes (Other)
  Sender: FDA-Public Use
  Company Number: IT-B.I. PHARMACEUTICALS,INC./RIDGEFIELD-2014-BI-06434GD

PATIENT
  Sex: 0

DRUGS (2)
  1. PRAMIPEXOLE [Suspect]
     Indication: PARKINSON^S DISEASE
  2. LEVODOPA [Suspect]
     Indication: PARKINSON^S DISEASE

REACTIONS (3)
  - Dopamine dysregulation syndrome [Unknown]
  - Intentional drug misuse [Unknown]
  - Intentional drug misuse [Unknown]
